FAERS Safety Report 13827711 (Version 2)
Quarter: 2017Q3

REPORT INFORMATION
  Report Type: Spontaneous
  Country: AU (occurrence: AU)
  Receive Date: 20170803
  Receipt Date: 20170913
  Transmission Date: 20171127
  Serious: Yes (Death, Hospitalization, Other)
  Sender: FDA-Public Use
  Company Number: AU-AMGEN-AUSSP2017116326

PATIENT
  Age: 28 Year
  Sex: Male

DRUGS (1)
  1. BLINCYTO [Suspect]
     Active Substance: BLINATUMOMAB
     Indication: ACUTE LYMPHOCYTIC LEUKAEMIA
     Dosage: UNK
     Route: 065
     Dates: start: 20170629, end: 20170712

REACTIONS (5)
  - Acute lymphocytic leukaemia [Not Recovered/Not Resolved]
  - Multiple organ dysfunction syndrome [Fatal]
  - Pulmonary haemorrhage [Unknown]
  - Sepsis [Fatal]
  - Infection [Unknown]

NARRATIVE: CASE EVENT DATE: 2017
